FAERS Safety Report 8965389 (Version 1)
Quarter: 2012Q4

REPORT INFORMATION
  Report Type: 
  Country: US (occurrence: US)
  Receive Date: 20121214
  Receipt Date: 20121214
  Transmission Date: 20130627
  Serious: Yes (Death)
  Sender: FDA-Public Use
  Company Number: US-TEVA-375527USA

PATIENT
  Age: 70 Year
  Sex: Female

DRUGS (5)
  1. ETOPOSIDE [Suspect]
     Indication: STEM CELL TRANSPLANT
     Route: 042
  2. CYCLOPHOSPHAMIDE [Suspect]
     Indication: STEM CELL TRANSPLANT
     Route: 042
  3. CARMUSTINE [Suspect]
     Indication: STEM CELL TRANSPLANT
     Dosage: 112.5 mg/m2 daily
     Route: 042
  4. MESNA [Concomitant]
     Dosage: 750 mg/m2 per day; continuous infusion
     Route: 050
  5. FILGRASTIM [Concomitant]
     Dosage: 5 microg/kg daily
     Route: 065

REACTIONS (1)
  - Pneumonitis [Fatal]
